FAERS Safety Report 19046810 (Version 1)
Quarter: 2021Q1

REPORT INFORMATION
  Report Type: Spontaneous
  Country: DE (occurrence: DE)
  Receive Date: 20210322
  Receipt Date: 20210322
  Transmission Date: 20210420
  Serious: No
  Sender: FDA-Public Use
  Company Number: DE-LUPIN PHARMACEUTICALS INC.-2021-03573

PATIENT
  Age: 29 Year
  Sex: Male

DRUGS (6)
  1. AZACITIDINE. [Suspect]
     Active Substance: AZACITIDINE
     Indication: CHRONIC LEUKAEMIA
     Dosage: UNK UNK, SINGLE, RECEIVED A SINGLE COURSE
     Route: 065
     Dates: start: 2019
  2. HYDROXYUREA. [Suspect]
     Active Substance: HYDROXYUREA
     Indication: CHRONIC LEUKAEMIA
     Dosage: UNK
     Route: 065
     Dates: start: 2019
  3. RUXOLITINIB [Suspect]
     Active Substance: RUXOLITINIB
     Indication: NEUTROPHILIA
     Dosage: 15 MILLIGRAM, BID
     Route: 065
     Dates: start: 2019
  4. RUXOLITINIB [Suspect]
     Active Substance: RUXOLITINIB
     Indication: CHRONIC LEUKAEMIA
     Dosage: 10 MILLIGRAM
     Route: 065
     Dates: start: 2019, end: 2019
  5. AZACITIDINE. [Suspect]
     Active Substance: AZACITIDINE
     Indication: NEUTROPHILIA
  6. HYDROXYUREA. [Suspect]
     Active Substance: HYDROXYUREA
     Indication: NEUTROPHILIA

REACTIONS (1)
  - Off label use [Unknown]

NARRATIVE: CASE EVENT DATE: 2019
